APPROVED DRUG PRODUCT: PANTOPRAZOLE SODIUM
Active Ingredient: PANTOPRAZOLE SODIUM
Strength: EQ 40MG BASE/VIAL
Dosage Form/Route: INJECTABLE;INTRAVENOUS
Application: A208580 | Product #001
Applicant: PHARMOBEDIENT CONSULTING LLC
Approved: May 4, 2018 | RLD: No | RS: No | Type: DISCN